FAERS Safety Report 19257688 (Version 1)
Quarter: 2021Q2

REPORT INFORMATION
  Report Type: Spontaneous
  Country: US (occurrence: US)
  Receive Date: 20210513
  Receipt Date: 20210513
  Transmission Date: 20210717
  Serious: Yes (Hospitalization)
  Sender: FDA-Public Use
  Company Number: None

PATIENT
  Age: 31 Year
  Sex: Female

DRUGS (3)
  1. N/A [Concomitant]
     Active Substance: UNSPECIFIED INGREDIENT
  2. MAKENA [Suspect]
     Active Substance: HYDROXYPROGESTERONE CAPROATE
     Indication: PRENATAL CARE
     Dosage: OTHER FREQUENCY:WEEKLY;?
     Route: 058
     Dates: start: 20210416
  3. MAKENA [Suspect]
     Active Substance: HYDROXYPROGESTERONE CAPROATE
     Indication: SECOND TRIMESTER PREGNANCY
     Dosage: OTHER FREQUENCY:WEEKLY;?
     Route: 058
     Dates: start: 20210416

REACTIONS (1)
  - Cervix cerclage procedure [None]

NARRATIVE: CASE EVENT DATE: 20210501
